FAERS Safety Report 13177626 (Version 1)
Quarter: 2017Q1

REPORT INFORMATION
  Report Type: Report from Study
  Country: US (occurrence: US)
  Receive Date: 20170201
  Receipt Date: 20170201
  Transmission Date: 20170428
  Serious: No
  Sender: FDA-Public Use
  Company Number: US-EXELIXIS-CABO-16006695

PATIENT
  Sex: Male

DRUGS (7)
  1. TOPROL XL [Concomitant]
     Active Substance: METOPROLOL SUCCINATE
  2. SIMCOR [Concomitant]
     Active Substance: NIACIN\SIMVASTATIN
  3. COMETRIQ [Suspect]
     Active Substance: CABOZANTINIB S-MALATE
     Indication: RENAL CANCER
     Dosage: 60 MG, QD
     Route: 048
     Dates: start: 20160323
  4. ASPIRIN. [Concomitant]
     Active Substance: ASPIRIN
  5. PREDNISONE. [Concomitant]
     Active Substance: PREDNISONE
  6. ZETIA [Concomitant]
     Active Substance: EZETIMIBE
  7. AVAPRO [Concomitant]
     Active Substance: IRBESARTAN

REACTIONS (4)
  - Off label use [Unknown]
  - Gait disturbance [Unknown]
  - Wound [Not Recovered/Not Resolved]
  - Blister [Not Recovered/Not Resolved]
